FAERS Safety Report 7200470-X (Version None)
Quarter: 2010Q4

REPORT INFORMATION
  Report Type: 
  Country: None (occurrence: None)
  Receive Date: 20101215
  Receipt Date: 20101130
  Transmission Date: 20110411
  Serious: Yes (Other)
  Sender: FDA-Public Use
  Company Number: DSJ-2010-21263

PATIENT
  Age: 60 Year
  Sex: Female

DRUGS (9)
  1. BENICAR [Suspect]
     Indication: HYPERTENSION
     Dosage: 40 MG (40 MG, 1 IN 1 D), PER ORAL
     Route: 048
     Dates: start: 20101027, end: 20101122
  2. ATENOLOL [Suspect]
     Indication: HYPERTENSION
     Dosage: 50 MG, PER ORAL
     Route: 048
     Dates: start: 20101027
  3. HYDROCHLOROTHIAZIDE [Suspect]
     Indication: HYPERTENSION
     Dosage: 25 MG, PER ORAL
     Route: 048
     Dates: start: 20101027
  4. SIMVASTATIN [Suspect]
     Indication: HYPERCHOLESTEROLAEMIA
     Dosage: 20 MG, PER ORAL
     Route: 048
     Dates: start: 20101027
  5. SIMVASTATIN [Suspect]
     Indication: HYPERTRIGLYCERIDAEMIA
     Dosage: 20 MG, PER ORAL
     Route: 048
     Dates: start: 20101027
  6. ACETYLSALICYLIC ACID SRT [Suspect]
     Indication: PRODUCT USED FOR UNKNOWN INDICATION
     Dosage: 200 MG, PER ORAL
     Route: 048
     Dates: start: 20101027
  7. GLYBURIDE AND METFORMIN HCL [Concomitant]
  8. CALCIUM CARBONATE/VITAMIN D (COLECALCIFEROL, CALCIUM CARBONATE) [Concomitant]
  9. TRAZODONE [Concomitant]

REACTIONS (3)
  - BLOOD PRESSURE INCREASED [None]
  - HYPERAEMIA [None]
  - HYPERSENSITIVITY [None]
